FAERS Safety Report 5529224-7 (Version None)
Quarter: 2007Q4

REPORT INFORMATION
  Report Type: 
  Country: None (occurrence: None)
  Receive Date: 20071129
  Receipt Date: 20070712
  Transmission Date: 20080405
  Serious: Yes (Other)
  Sender: FDA-Public Use
  Company Number: A0663686A

PATIENT
  Age: 59 Year
  Sex: Male

DRUGS (2)
  1. WELLBUTRIN [Suspect]
     Indication: DRUG USE FOR UNKNOWN INDICATION
     Dosage: 150MG TWICE PER DAY
     Route: 048
  2. DEPAKOTE [Concomitant]

REACTIONS (2)
  - DRUG INEFFECTIVE [None]
  - SUICIDAL IDEATION [None]
